FAERS Safety Report 4382136-7 (Version None)
Quarter: 2004Q2

REPORT INFORMATION
  Report Type: 
  Country: None (occurrence: None)
  Receive Date: 20040617
  Receipt Date: 20031021
  Transmission Date: 20050107
  Serious: Yes (Other)
  Sender: FDA-Public Use
  Company Number: 349792

PATIENT
  Age: 48 Year
  Sex: Female
  Weight: 127.9 kg

DRUGS (2)
  1. XENICAL [Suspect]
     Indication: OBESITY
     Dosage: 120 MG 3 PER DAY ORAL
     Route: 048
     Dates: start: 20030730, end: 20030902
  2. XENICAL [Suspect]
     Indication: WEIGHT CONTROL
     Dosage: 120 MG 3 PER DAY ORAL
     Route: 048
     Dates: start: 20030730, end: 20030902

REACTIONS (3)
  - ABDOMINAL PAIN UPPER [None]
  - DYSPEPSIA [None]
  - WEIGHT INCREASED [None]
